FAERS Safety Report 6686386-6 (Version None)
Quarter: 2010Q2

REPORT INFORMATION
  Report Type: 
  Country: None (occurrence: None)
  Receive Date: 20100419
  Receipt Date: 20100407
  Transmission Date: 20101027
  Serious: No
  Sender: FDA-Public Use
  Company Number: US-B.I. PHARMACEUTICALS,INC./RIDGEFIELD-2010-BP-04033BP

PATIENT
  Sex: Female

DRUGS (9)
  1. SPIRIVA [Suspect]
     Indication: CHRONIC OBSTRUCTIVE PULMONARY DISEASE
     Dosage: 18 MCG
     Route: 055
     Dates: start: 20040101
  2. ATENOLOL [Concomitant]
     Indication: HYPERTENSION
  3. TOPAMAX [Concomitant]
     Indication: BIPOLAR DISORDER
  4. EFFEXOR [Concomitant]
     Indication: BIPOLAR DISORDER
  5. ADDERALL 30 [Concomitant]
     Indication: BIPOLAR DISORDER
  6. ACYCLOVIR [Concomitant]
     Indication: ORAL HERPES
  7. QVAR 40 [Concomitant]
     Indication: CHRONIC OBSTRUCTIVE PULMONARY DISEASE
  8. ALBUTEROL [Concomitant]
     Indication: CHRONIC OBSTRUCTIVE PULMONARY DISEASE
  9. VITAMINS [Concomitant]
     Indication: PROPHYLAXIS

REACTIONS (2)
  - ORAL DISORDER [None]
  - TOOTHACHE [None]
